FAERS Safety Report 25323913 (Version 1)
Quarter: 2025Q2

REPORT INFORMATION
  Report Type: Spontaneous
  Country: US (occurrence: None)
  Receive Date: 20250515
  Receipt Date: 20250515
  Transmission Date: 20250716
  Serious: Yes (Other)
  Sender: FDA-CTU
  Company Number: None

PATIENT
  Age: 77 Year
  Sex: Female

DRUGS (11)
  1. EVENITY [Suspect]
     Active Substance: ROMOSOZUMAB-AQQG
     Dates: start: 20241210, end: 20250515
  2. SYMBICORT [Concomitant]
     Active Substance: BUDESONIDE\FORMOTEROL FUMARATE DIHYDRATE
  3. prontonix [Concomitant]
  4. CRESTOR [Concomitant]
     Active Substance: ROSUVASTATIN CALCIUM
  5. SINGULAIR [Concomitant]
     Active Substance: MONTELUKAST SODIUM
  6. zyretc [Concomitant]
  7. vitmain D [Concomitant]
  8. erins vitamins [Concomitant]
  9. TUMS [Concomitant]
     Active Substance: CALCIUM CARBONATE
  10. RESTASIS [Concomitant]
     Active Substance: CYCLOSPORINE
  11. ALBUTEROL [Concomitant]
     Active Substance: ALBUTEROL

REACTIONS (4)
  - Adverse drug reaction [None]
  - Pain in extremity [None]
  - Pain in extremity [None]
  - Respiratory tract infection [None]

NARRATIVE: CASE EVENT DATE: 20250212
